FAERS Safety Report 22636799 (Version 2)
Quarter: 2024Q3

REPORT INFORMATION
  Report Type: Other
  Country: CO (occurrence: CO)
  Receive Date: 20230626
  Receipt Date: 20240808
  Transmission Date: 20241016
  Serious: No
  Sender: TOLMAR
  Company Number: CO-TOLMAR, INC.-23CO041317

PATIENT
  Age: 8 Year
  Sex: Female
  Weight: 34 kg

DRUGS (3)
  1. ELIGARD [Suspect]
     Active Substance: LEUPROLIDE ACETATE
     Indication: Precocious puberty
     Dosage: 22.3 MILLIGRAM, Q 3 MONTH
     Route: 058
     Dates: start: 20230531
  2. ELIGARD [Suspect]
     Active Substance: LEUPROLIDE ACETATE
     Dosage: 22.3 MILLIGRAM, Q 3 MONTH
     Route: 058
     Dates: start: 202403
  3. ELIGARD [Suspect]
     Active Substance: LEUPROLIDE ACETATE
     Indication: Precocious puberty
     Dosage: UNK

REACTIONS (4)
  - Oropharyngeal pain [Recovering/Resolving]
  - Tonsillar inflammation [Unknown]
  - Therapy cessation [Unknown]
  - Injection site pain [Recovering/Resolving]

NARRATIVE: CASE EVENT DATE: 20230531
